FAERS Safety Report 4926670-7 (Version None)
Quarter: 2006Q1

REPORT INFORMATION
  Report Type: 
  Country: None (occurrence: None)
  Receive Date: 20060228
  Receipt Date: 20050523
  Transmission Date: 20060701
  Serious: Yes (Life-Threatening, Hospitalization, Disabling, Other)
  Sender: FDA-Public Use
  Company Number: US-GLAXOSMITHKLINE-A0559733A

PATIENT
  Age: 35 Year
  Sex: Male
  Weight: 104.5 kg

DRUGS (1)
  1. LAMICTAL [Suspect]
     Indication: BIPOLAR DISORDER
     Route: 048
     Dates: start: 20050323, end: 20050520

REACTIONS (15)
  - DIZZINESS [None]
  - FULL BLOOD COUNT ABNORMAL [None]
  - HEADACHE [None]
  - HEPATIC ENZYME INCREASED [None]
  - MUCOUS MEMBRANE DISORDER [None]
  - NAUSEA [None]
  - OCULAR HYPERAEMIA [None]
  - ORAL SOFT TISSUE DISORDER [None]
  - RASH [None]
  - SKIN EXFOLIATION [None]
  - SKIN LESION [None]
  - STEVENS-JOHNSON SYNDROME [None]
  - SWELLING FACE [None]
  - TOXIC EPIDERMAL NECROLYSIS [None]
  - VOMITING [None]
